FAERS Safety Report 8851945 (Version 1)
Quarter: 2012Q4

REPORT INFORMATION
  Report Type: 
  Country: US (occurrence: US)
  Receive Date: 20121022
  Receipt Date: 20121022
  Transmission Date: 20130627
  Serious: Yes (Other)
  Sender: FDA-Public Use
  Company Number: US-ELI_LILLY_AND_COMPANY-US201210003532

PATIENT
  Sex: Male

DRUGS (2)
  1. CYMBALTA [Suspect]
     Indication: FIBROMYALGIA
  2. ANTIINFLAMMATORY AGENTS, NON-STEROIDS [Concomitant]
     Dosage: UNK

REACTIONS (2)
  - Craniocerebral injury [Unknown]
  - Gastrointestinal haemorrhage [Unknown]
